FAERS Safety Report 4555164-6 (Version None)
Quarter: 2005Q1

REPORT INFORMATION
  Report Type: 
  Country: None (occurrence: None)
  Receive Date: 20041228
  Receipt Date: 20040630
  Transmission Date: 20050727
  Serious: Yes (Other)
  Sender: FDA-Public Use
  Company Number: PHEH2004US07160

PATIENT
  Age: 56 Year
  Sex: Female

DRUGS (6)
  1. AREDIA [Suspect]
     Dates: start: 19980601, end: 20040501
  2. TAXOTERE [Concomitant]
  3. ANZEMET (DOLASETRON MESILATE) [Concomitant]
  4. DECADRON [Concomitant]
  5. VOCODIN [Concomitant]
  6. IBUPROFEN [Concomitant]

REACTIONS (4)
  - ABSCESS [None]
  - ORAL SURGERY [None]
  - OSTEONECROSIS [None]
  - PAIN IN JAW [None]
